FAERS Safety Report 6372761-6 (Version None)
Quarter: 2009Q3

REPORT INFORMATION
  Report Type: 
  Country: None (occurrence: None)
  Receive Date: 20090924
  Receipt Date: 20081103
  Transmission Date: 20100115
  Serious: No
  Sender: FDA-Public Use
  Company Number: US-ASTRAZENECA-2008UW24559

PATIENT
  Age: 30 Year
  Sex: Male

DRUGS (2)
  1. SEROQUEL [Suspect]
     Indication: BIPOLAR I DISORDER
     Dosage: 50 MG
     Route: 048
     Dates: start: 20081029
  2. SEROQUEL [Suspect]
     Dosage: 300 MG
     Route: 048

REACTIONS (9)
  - ABDOMINAL PAIN UPPER [None]
  - FEELING JITTERY [None]
  - HALLUCINATION [None]
  - HYPERHIDROSIS [None]
  - HYPOAESTHESIA [None]
  - MUSCLE SPASMS [None]
  - NERVOUS SYSTEM DISORDER [None]
  - PAIN IN EXTREMITY [None]
  - PARAESTHESIA [None]
